FAERS Safety Report 11716378 (Version 1)
Quarter: 2015Q4

REPORT INFORMATION
  Report Type: Report from Study
  Country: FR (occurrence: FR)
  Receive Date: 20151109
  Receipt Date: 20151109
  Transmission Date: 20160304
  Serious: Yes (Hospitalization)
  Sender: FDA-Public Use
  Company Number: FR-ABBVIE-12P-056-0928306-03

PATIENT
  Sex: Female

DRUGS (5)
  1. SMECTA [Concomitant]
     Active Substance: MONTMORILLONITE
     Indication: DIARRHOEA
     Dates: start: 20090303
  2. SMECTA [Concomitant]
     Active Substance: MONTMORILLONITE
     Indication: CROHN^S DISEASE
  3. HUMIRA [Suspect]
     Active Substance: ADALIMUMAB
     Indication: CROHN^S DISEASE
     Route: 058
     Dates: start: 20051216, end: 20091126
  4. DIANTALVIC [Concomitant]
     Indication: ABDOMINAL PAIN
     Dosage: 400MG/30MG
     Dates: start: 2009
  5. DIANTALVIC [Concomitant]
     Indication: CROHN^S DISEASE

REACTIONS (2)
  - Diarrhoea [Unknown]
  - Dehydration [Unknown]

NARRATIVE: CASE EVENT DATE: 20111125
